FAERS Safety Report 15974105 (Version 2)
Quarter: 2020Q3

REPORT INFORMATION
  Report Type: Spontaneous
  Country: DE (occurrence: DE)
  Receive Date: 20190217
  Receipt Date: 20190221
  Transmission Date: 20201104
  Serious: No
  Sender: FDA-Public Use
  Company Number: DE-ROCHE-2266441

PATIENT
  Sex: Male

DRUGS (1)
  1. EMICIZUMAB. [Suspect]
     Active Substance: EMICIZUMAB
     Indication: PRODUCT USED FOR UNKNOWN INDICATION
     Route: 065

REACTIONS (1)
  - Haematoma [Not Recovered/Not Resolved]
